FAERS Safety Report 13678787 (Version 1)
Quarter: 2017Q2

REPORT INFORMATION
  Report Type: Spontaneous
  Country: US (occurrence: US)
  Receive Date: 20170622
  Receipt Date: 20170622
  Transmission Date: 20170830
  Serious: No
  Sender: FDA-Public Use
  Company Number: US-GLAXOSMITHKLINE-US2017092756

PATIENT
  Sex: Female

DRUGS (1)
  1. VOLTAREN [Suspect]
     Active Substance: DICLOFENAC SODIUM
     Indication: POLYARTHRITIS
     Dosage: 4 G, QD
     Dates: start: 20170614

REACTIONS (3)
  - Drug administered at inappropriate site [Unknown]
  - Product use issue [Unknown]
  - Product use in unapproved indication [Unknown]
